FAERS Safety Report 12236739 (Version 1)
Quarter: 2016Q2

REPORT INFORMATION
  Report Type: Spontaneous
  Country: US (occurrence: US)
  Receive Date: 20160405
  Receipt Date: 20160405
  Transmission Date: 20160815
  Serious: No
  Sender: FDA-Public Use
  Company Number: US-ASTRAZENECA-2016SE32492

PATIENT
  Age: 31386 Day
  Sex: Male

DRUGS (1)
  1. BRILINTA [Suspect]
     Active Substance: TICAGRELOR
     Indication: ACUTE CORONARY SYNDROME
     Route: 048
     Dates: start: 20160318

REACTIONS (3)
  - Pruritus [Unknown]
  - Skin depigmentation [Unknown]
  - Rash [Unknown]

NARRATIVE: CASE EVENT DATE: 20160322
